FAERS Safety Report 4597153-1 (Version None)
Quarter: 2005Q1

REPORT INFORMATION
  Report Type: 
  Country: None (occurrence: None)
  Receive Date: 20050302
  Receipt Date: 20050301
  Transmission Date: 20050727
  Serious: Yes (Death, Hospitalization)
  Sender: FDA-Public Use
  Company Number: 04-12-1732

PATIENT
  Age: 46 Year
  Sex: Female

DRUGS (6)
  1. CLOZAPINE [Suspect]
     Indication: SCHIZOAFFECTIVE DISORDER
     Dosage: 100MG TID ORAL
     Route: 048
     Dates: start: 19990501, end: 20041101
  2. ARICEPT [Concomitant]
  3. NEURONTIN [Concomitant]
  4. CLONAZEPAM [Concomitant]
  5. DILANTIN [Concomitant]
  6. REMERON [Concomitant]

REACTIONS (7)
  - ANOXIC ENCEPHALOPATHY [None]
  - CARDIAC ARREST [None]
  - COMA [None]
  - CONVULSION [None]
  - COUGH [None]
  - ELECTROCARDIOGRAM QT PROLONGED [None]
  - PNEUMONIA [None]
